FAERS Safety Report 4796849-6 (Version None)
Quarter: 2005Q3

REPORT INFORMATION
  Report Type: 
  Country: None (occurrence: None)
  Receive Date: 20050916
  Receipt Date: 20050105
  Transmission Date: 20060218
  Serious: Yes (Hospitalization)
  Sender: FDA-Public Use
  Company Number: US-JNJFOC-20050101343

PATIENT
  Age: 60 Year
  Sex: Male
  Weight: 69.8539 kg

DRUGS (4)
  1. TOPAMAX [Suspect]
     Indication: PAIN
     Dosage: 50 MG, ORAL
     Route: 048
     Dates: start: 20041223, end: 20050104
  2. PERCODAN [Concomitant]
  3. VALIUM [Concomitant]
  4. ANTIHYPERTENSIVES [Concomitant]

REACTIONS (2)
  - HYPOTENSION [None]
  - INFLUENZA [None]
